FAERS Safety Report 7031043-X (Version None)
Quarter: 2010Q4

REPORT INFORMATION
  Report Type: 
  Country: None (occurrence: None)
  Receive Date: 20101006
  Receipt Date: 20100928
  Transmission Date: 20110411
  Serious: Yes (Life-Threatening, Hospitalization)
  Sender: FDA-Public Use
  Company Number: BE-BAYER-201040682GPV

PATIENT
  Age: 67 Year
  Sex: Female

DRUGS (2)
  1. MOXIFLOXACIN HCL [Suspect]
     Indication: BRONCHITIS
     Dosage: TOTAL DAILY DOSE: 400 MG  UNIT DOSE: 400 MG
     Route: 048
     Dates: start: 20100101, end: 20100101
  2. MAREVAN [Interacting]
     Indication: MESENTERIC VEIN THROMBOSIS
     Dosage: FOR ONE OR TWO YEARS
     Route: 048

REACTIONS (3)
  - COAGULOPATHY [None]
  - HAEMORRHAGE INTRACRANIAL [None]
  - HEADACHE [None]
